FAERS Safety Report 4405183-5 (Version None)
Quarter: 2004Q3

REPORT INFORMATION
  Report Type: 
  Country: None (occurrence: None)
  Receive Date: 20040722
  Receipt Date: 20040722
  Transmission Date: 20050211
  Serious: No
  Sender: FDA-Public Use
  Company Number: None

PATIENT
  Age: 50 Year
  Sex: Female

DRUGS (1)
  1. WELLBUTRIN [Suspect]
     Indication: ANXIETY
     Dosage: 150 MG 1X DAY

REACTIONS (8)
  - ABDOMINAL PAIN UPPER [None]
  - CONFUSIONAL STATE [None]
  - CONSTIPATION [None]
  - DYSPNOEA EXERTIONAL [None]
  - ERYTHEMA [None]
  - FLATULENCE [None]
  - HYPERHIDROSIS [None]
  - PHARMACEUTICAL PRODUCT COMPLAINT [None]
